FAERS Safety Report 24182567 (Version 1)
Quarter: 2024Q3

REPORT INFORMATION
  Report Type: Spontaneous
  Country: US (occurrence: US)
  Receive Date: 20240807
  Receipt Date: 20240807
  Transmission Date: 20241017
  Serious: Yes (Other)
  Sender: STRIDES
  Company Number: US-STRIDES ARCOLAB LIMITED-2024SP009735

PATIENT
  Age: 46 Year
  Sex: Female

DRUGS (1)
  1. TACROLIMUS [Suspect]
     Active Substance: TACROLIMUS
     Indication: Prophylaxis against transplant rejection
     Dosage: UNK
     Route: 065
     Dates: start: 2022

REACTIONS (3)
  - Idiopathic intracranial hypertension [Recovered/Resolved]
  - Condition aggravated [Recovered/Resolved]
  - Renal tubular injury [Recovered/Resolved]

NARRATIVE: CASE EVENT DATE: 20220101
